FAERS Safety Report 6894696-2 (Version None)
Quarter: 2010Q3

REPORT INFORMATION
  Report Type: 
  Country: None (occurrence: None)
  Receive Date: 20100708
  Receipt Date: 20100412
  Transmission Date: 20110219
  Serious: Yes (Other)
  Sender: FDA-Public Use
  Company Number: 2010047116

PATIENT
  Age: 49 Year
  Sex: Female
  Weight: 46.3 kg

DRUGS (2)
  1. CHANTIX [Suspect]
     Indication: SMOKING CESSATION THERAPY
     Dosage: 0.5 MG, 1X/DAY, ORAL 0.5 MG, 2X/DAY 1 MG, 2X/DAY
     Route: 048
     Dates: start: 20090101, end: 20090101
  2. CHANTIX [Suspect]
     Indication: SMOKING CESSATION THERAPY
     Dosage: 0.5 MG, 1X/DAY, ORAL 0.5 MG, 2X/DAY 1 MG, 2X/DAY
     Route: 048

REACTIONS (1)
  - SUICIDAL IDEATION [None]
